FAERS Safety Report 6635744-4 (Version None)
Quarter: 2010Q1

REPORT INFORMATION
  Report Type: 
  Country: None (occurrence: None)
  Receive Date: 20100309
  Receipt Date: 20100304
  Transmission Date: 20100710
  Serious: Yes (Death)
  Sender: FDA-Public Use
  Company Number: 2010SP007803

PATIENT
  Sex: Female
  Weight: 89 kg

DRUGS (4)
  1. TEMODAL [Suspect]
     Indication: CENTRAL NERVOUS SYSTEM LYMPHOMA
     Dosage: 150 MG/M2; IV
     Route: 042
     Dates: start: 20091221, end: 20091228
  2. TEMODAL [Suspect]
     Indication: CENTRAL NERVOUS SYSTEM LYMPHOMA
     Dosage: 150 MG/M2; IV
     Route: 042
     Dates: start: 20100125, end: 20100131
  3. MABTHERA [Concomitant]
  4. RITUXIMAB [Concomitant]

REACTIONS (5)
  - DEVICE RELATED INFECTION [None]
  - ENTEROBACTER INFECTION [None]
  - PNEUMONIA [None]
  - SEPSIS [None]
  - STAPHYLOCOCCAL INFECTION [None]
